FAERS Safety Report 12480624 (Version 2)
Quarter: 2016Q2

REPORT INFORMATION
  Report Type: Spontaneous
  Country: US (occurrence: US)
  Receive Date: 20160620
  Receipt Date: 20160624
  Transmission Date: 20160815
  Serious: No
  Sender: FDA-Public Use
  Company Number: US-VERTEX PHARMACEUTICALS-2016-003856

PATIENT
  Age: 20 Year
  Sex: Male

DRUGS (12)
  1. ORKAMBI [Suspect]
     Active Substance: IVACAFTOR\LUMACAFTOR
     Indication: CYSTIC FIBROSIS
     Dosage: 2 DF, BID
     Route: 048
     Dates: start: 2015
  2. ALBUTEROL. [Concomitant]
     Active Substance: ALBUTEROL
     Dosage: 2 DF, BID
     Route: 055
  3. PULMOZYME [Concomitant]
     Active Substance: DORNASE ALFA
  4. IBUPROFEN. [Concomitant]
     Active Substance: IBUPROFEN
  5. ZINC OXIDE. [Concomitant]
     Active Substance: ZINC OXIDE
  6. OMEPRAZOLE. [Concomitant]
     Active Substance: OMEPRAZOLE
  7. AZITHROMYCIN ANHYDROUS. [Concomitant]
     Active Substance: AZITHROMYCIN ANHYDROUS
     Dosage: 250 MG, QD
     Route: 048
  8. FLUTICASONE [Concomitant]
     Active Substance: FLUTICASONE\FLUTICASONE PROPIONATE
     Dosage: 2 PUFFS EACH NOSTRIL, BID
  9. FEXOFENADINE [Concomitant]
     Active Substance: FEXOFENADINE\FEXOFENADINE HYDROCHLORIDE
  10. MULTIVITAMIN [Concomitant]
     Active Substance: VITAMINS
  11. CREON [Concomitant]
     Active Substance: PANCRELIPASE AMYLASE\PANCRELIPASE LIPASE\PANCRELIPASE PROTEASE
     Dosage: TAKE SIX CAPSULES BY MOUTH WITH MEALS AND THREE TIMES A DAY AND THREE CAPSULES WITH SNACKS
     Route: 048
  12. SODIUM CHLORIDE. [Concomitant]
     Active Substance: SODIUM CHLORIDE

REACTIONS (1)
  - Flatulence [Recovering/Resolving]

NARRATIVE: CASE EVENT DATE: 201512
